FAERS Safety Report 4634073-8 (Version None)
Quarter: 2005Q2

REPORT INFORMATION
  Report Type: 
  Country: None (occurrence: None)
  Receive Date: 20050413
  Receipt Date: 20050330
  Transmission Date: 20051028
  Serious: Yes (Hospitalization, Other)
  Sender: FDA-Public Use
  Company Number: US-GLAXOSMITHKLINE-A0551864A

PATIENT
  Age: 49 Year
  Sex: Male
  Weight: 74 kg

DRUGS (9)
  1. TUMS SMOOTH DISSOLVE TABLETS [Suspect]
     Route: 048
     Dates: start: 20020101
  2. SINUS MEDICATION [Concomitant]
     Indication: SINUS DISORDER
  3. ARTHRITIS MEDICATION [Concomitant]
     Indication: ARTHRITIS
  4. MULTI-VITAMIN [Concomitant]
  5. VITAMIN C [Concomitant]
  6. AMINOSALICYLATE ACID [Concomitant]
     Indication: COLITIS
  7. FOLGARD [Concomitant]
     Indication: PROPHYLAXIS
     Route: 048
  8. NIASPAN [Concomitant]
     Indication: PROPHYLAXIS
     Route: 048
  9. SYNTHROID [Concomitant]
     Indication: HYPOTHYROIDISM
     Route: 048

REACTIONS (5)
  - ABDOMINAL PAIN [None]
  - CONSTIPATION [None]
  - CROHN'S DISEASE [None]
  - DIARRHOEA [None]
  - GRANULOCYTES ABNORMAL [None]
